FAERS Safety Report 14301916 (Version 1)
Quarter: 2017Q4

REPORT INFORMATION
  Report Type: Spontaneous
  Country: US (occurrence: US)
  Receive Date: 20171219
  Receipt Date: 20171219
  Transmission Date: 20180321
  Serious: No
  Sender: FDA-Public Use
  Company Number: US-RECKITT BENCKISER HEALTHCARE INT LIMITED-RB-80291-2017

PATIENT
  Age: 3 Year
  Sex: Female

DRUGS (1)
  1. DELSYM [Suspect]
     Active Substance: DEXTROMETHORPHAN
     Indication: PRODUCT USED FOR UNKNOWN INDICATION
     Dosage: UNK
     Route: 065
     Dates: start: 20161209

REACTIONS (3)
  - Drug administered to patient of inappropriate age [Not Recovered/Not Resolved]
  - Psychomotor hyperactivity [Not Recovered/Not Resolved]
  - Overdose [Not Recovered/Not Resolved]

NARRATIVE: CASE EVENT DATE: 20161209
